FAERS Safety Report 9265215 (Version 1)
Quarter: 2013Q2

REPORT INFORMATION
  Report Type: Spontaneous
  Country: AU (occurrence: AU)
  Receive Date: 20130501
  Receipt Date: 20130501
  Transmission Date: 20140414
  Serious: Yes (Death, Hospitalization, Other)
  Sender: FDA-Public Use
  Company Number: AU-SANOFI-AVENTIS-200116465GDDC

PATIENT
  Age: 74 Year
  Sex: Female

DRUGS (10)
  1. ARAVA [Suspect]
     Indication: RHEUMATOID ARTHRITIS
     Route: 048
     Dates: start: 20001207, end: 20010113
  2. METHOTREXATE [Interacting]
     Indication: PRODUCT USED FOR UNKNOWN INDICATION
     Dates: start: 20010105, end: 20010112
  3. METHYLPREDNISOLONE [Suspect]
     Indication: PRODUCT USED FOR UNKNOWN INDICATION
  4. HYDROXYCHLOROQUINE [Suspect]
     Indication: PRODUCT USED FOR UNKNOWN INDICATION
     Dosage: DOSE AS USED: UNK
     Route: 065
  5. SULFASALAZINE [Suspect]
     Indication: PRODUCT USED FOR UNKNOWN INDICATION
     Dosage: DOSE AS USED: UNK
     Route: 065
  6. PREDNISOLONE [Concomitant]
  7. DILTIAZEM [Concomitant]
  8. METOPROLOL [Concomitant]
  9. PAROXETINE [Concomitant]
  10. OMEPRAZOLE [Concomitant]
     Dosage: DOSE AS USED: UNK

REACTIONS (8)
  - Pancytopenia [Fatal]
  - Drug interaction [Fatal]
  - Sepsis [Fatal]
  - Pneumonia [Fatal]
  - Melaena [Unknown]
  - Nausea [Unknown]
  - Vomiting [Unknown]
  - Asthenia [Unknown]
